FAERS Safety Report 11937995 (Version 1)
Quarter: 2016Q1

REPORT INFORMATION
  Report Type: Spontaneous
  Country: US (occurrence: None)
  Receive Date: 20160120
  Receipt Date: 20160120
  Transmission Date: 20160526
  Serious: Yes (Other)
  Sender: FDA-Public Use
  Company Number: None

PATIENT
  Age: 35 Year
  Sex: Male
  Weight: 105.69 kg

DRUGS (1)
  1. SUBOXONE [Suspect]
     Active Substance: BUPRENORPHINE HYDROCHLORIDE\NALOXONE HYDROCHLORIDE
     Indication: DRUG DEPENDENCE
     Dosage: 8-2 MG, 1 1/2 DAILY, SL
     Dates: start: 201107, end: 201203

REACTIONS (3)
  - Gastrooesophageal reflux disease [None]
  - Dyspepsia [None]
  - Rash [None]

NARRATIVE: CASE EVENT DATE: 201205
